FAERS Safety Report 6657435-6 (Version None)
Quarter: 2010Q1

REPORT INFORMATION
  Report Type: 
  Country: None (occurrence: None)
  Receive Date: 20100330
  Receipt Date: 20100323
  Transmission Date: 20100710
  Serious: Yes (Death, Other)
  Sender: FDA-Public Use
  Company Number: JP-PFIZER INC-2007107645

PATIENT
  Age: 82 Year
  Sex: Female

DRUGS (2)
  1. ATARAX [Suspect]
     Dosage: 50 MG, SINGLE
     Route: 042
     Dates: start: 20071201
  2. INSULIN [Concomitant]

REACTIONS (6)
  - ABDOMINAL DISTENSION [None]
  - BEDRIDDEN [None]
  - HALLUCINATION [None]
  - NAUSEA [None]
  - RASH MACULAR [None]
  - SOMNOLENCE [None]
